FAERS Safety Report 7544025-6 (Version None)
Quarter: 2011Q2

REPORT INFORMATION
  Report Type: 
  Country: None (occurrence: None)
  Receive Date: 20110613
  Receipt Date: 20041104
  Transmission Date: 20111010
  Serious: Yes (Death)
  Sender: FDA-Public Use
  Company Number: PHHO2004JP14938

PATIENT
  Sex: Female
  Weight: 44 kg

DRUGS (8)
  1. WARFARIN SODIUM [Concomitant]
  2. MEXITIL [Concomitant]
  3. DIART [Concomitant]
  4. LANIRAPID [Concomitant]
  5. TORSEMIDE [Concomitant]
  6. LASIX [Concomitant]
  7. DIOVAN [Suspect]
     Indication: CARDIOPLEGIA
     Dosage: 40 MG, QD
     Route: 048
     Dates: start: 20021206, end: 20030628
  8. TICLOPIDINE HCL [Concomitant]

REACTIONS (6)
  - MYOCARDIAL ISCHAEMIA [None]
  - CARDIAC FAILURE CONGESTIVE [None]
  - ATRIAL FIBRILLATION [None]
  - FACE OEDEMA [None]
  - OEDEMA PERIPHERAL [None]
  - CHEST DISCOMFORT [None]
